FAERS Safety Report 9023603 (Version 2)
Quarter: 2013Q1

REPORT INFORMATION
  Report Type: Report from Study
  Country: US (occurrence: US)
  Receive Date: 20130121
  Receipt Date: 20130213
  Transmission Date: 20140127
  Serious: Yes (Hospitalization)
  Sender: FDA-Public Use
  Company Number: US-ACTELION-A-NJ2013-77851

PATIENT
  Age: 77 Year
  Sex: Female

DRUGS (4)
  1. TRACLEER [Suspect]
     Indication: PULMONARY ARTERIAL HYPERTENSION
     Dosage: 125 MG, BID
     Route: 048
     Dates: start: 2006
  2. TRACLEER [Suspect]
     Dosage: 62.5 MG, BID
     Route: 048
     Dates: start: 2006, end: 2006
  3. ADCIRCA [Concomitant]
  4. TYVASO [Concomitant]

REACTIONS (4)
  - Dehydration [Recovered/Resolved]
  - Constipation [Recovered/Resolved]
  - Eye infection [Recovered/Resolved]
  - Ear infection [Recovered/Resolved]
